FAERS Safety Report 20684643 (Version 4)
Quarter: 2024Q2

REPORT INFORMATION
  Report Type: Spontaneous
  Country: AU (occurrence: AU)
  Receive Date: 20220407
  Receipt Date: 20240606
  Transmission Date: 20240716
  Serious: Yes (Other)
  Sender: FDA-Public Use
  Company Number: AU-BRISTOL-MYERS SQUIBB COMPANY-2022-013769

PATIENT
  Age: 85 Year
  Sex: Female
  Weight: 74 kg

DRUGS (8)
  1. ELIQUIS [Suspect]
     Active Substance: APIXABAN
     Indication: Cerebrovascular accident prophylaxis
     Route: 048
  2. ELIQUIS [Suspect]
     Active Substance: APIXABAN
     Indication: Atrial fibrillation
     Route: 048
  3. FLECAINIDE [Concomitant]
     Active Substance: FLECAINIDE
     Indication: Product used for unknown indication
  4. SPIRONOLACTONE [Concomitant]
     Active Substance: SPIRONOLACTONE
     Indication: Blood pressure abnormal
     Dosage: SPIRACTIN 25
  5. THYROXINE [Concomitant]
     Active Substance: LEVOTHYROXINE
     Indication: Product used for unknown indication
  6. VITAMIN D NOS [Concomitant]
     Active Substance: CHOLECALCIFEROL\ERGOCALCIFEROL
     Indication: Product used for unknown indication
  7. ALDACTONE [Concomitant]
     Active Substance: SPIRONOLACTONE
     Indication: Product used for unknown indication
  8. TAMBOCOR [Concomitant]
     Active Substance: FLECAINIDE ACETATE
     Indication: Product used for unknown indication

REACTIONS (2)
  - Renal impairment [Unknown]
  - Atrioventricular block [Unknown]

NARRATIVE: CASE EVENT DATE: 20220315
